FAERS Safety Report 23348569 (Version 1)
Quarter: 2023Q4

REPORT INFORMATION
  Report Type: Spontaneous
  Country: FI (occurrence: FI)
  Receive Date: 20231228
  Receipt Date: 20231228
  Transmission Date: 20240109
  Serious: Yes (Death)
  Sender: FDA-Public Use
  Company Number: None

PATIENT
  Age: 74 Year
  Sex: Male

DRUGS (1)
  1. OFEV [Suspect]
     Active Substance: NINTEDANIB
     Indication: Pulmonary fibrosis
     Route: 048
     Dates: start: 20231030, end: 20231116

REACTIONS (5)
  - Acute kidney injury [Fatal]
  - Thrombocytopenia [Fatal]
  - Anaemia [Fatal]
  - Thrombotic microangiopathy [Fatal]
  - Haemolysis [Fatal]

NARRATIVE: CASE EVENT DATE: 20231101
